FAERS Safety Report 11847539 (Version 1)
Quarter: 2015Q4

REPORT INFORMATION
  Report Type: Spontaneous
  Country: JP (occurrence: JP)
  Receive Date: 20151217
  Receipt Date: 20151217
  Transmission Date: 20160305
  Serious: Yes (Death)
  Sender: FDA-Public Use
  Company Number: PHJP1900JP001482

PATIENT
  Age: 52 Year
  Sex: Male

DRUGS (3)
  1. CODEINE PHOSPHATE [Concomitant]
     Active Substance: CODEINE PHOSPHATE
     Indication: PRODUCT USED FOR UNKNOWN INDICATION
     Dosage: 20MG, UNK
     Route: 065
     Dates: start: 19860317, end: 19860322
  2. VOLTAREN SUP [Suspect]
     Active Substance: DICLOFENAC SODIUM
     Indication: ANALGESIC THERAPY
     Dosage: 150 MG, UNK
     Route: 065
     Dates: start: 19860206
  3. DEPAS [Concomitant]
     Active Substance: ETIZOLAM
     Indication: PRODUCT USED FOR UNKNOWN INDICATION
     Dosage: 0.5 MG, UNK
     Route: 048
     Dates: start: 19860123, end: 19860314

REACTIONS (7)
  - Respiratory failure [Fatal]
  - Haemoglobin decreased [Recovered/Resolved]
  - Red blood cell count decreased [Recovered/Resolved]
  - Blood lactate dehydrogenase decreased [Unknown]
  - Blood alkaline phosphatase decreased [Unknown]
  - Multi-organ failure [Fatal]
  - Leukopenia [Recovered/Resolved]
